FAERS Safety Report 21259040 (Version 2)
Quarter: 2022Q4

REPORT INFORMATION
  Report Type: Report from Study
  Country: US (occurrence: None)
  Receive Date: 20220826
  Receipt Date: 20221017
  Transmission Date: 20230112
  Serious: Yes (Other)
  Sender: FDA-Public Use
  Company Number: US-Merck KGaA-9078546

PATIENT
  Sex: Female

DRUGS (3)
  1. REBIF [Suspect]
     Active Substance: INTERFERON BETA-1A
     Indication: Product used for unknown indication
     Route: 058
     Dates: start: 20071208, end: 20110611
  2. REBIF [Suspect]
     Active Substance: INTERFERON BETA-1A
     Route: 058
     Dates: start: 20130717, end: 20220420
  3. REBIF [Suspect]
     Active Substance: INTERFERON BETA-1A
     Dates: start: 20200525, end: 20220304

REACTIONS (10)
  - Chronic kidney disease [Unknown]
  - Liver disorder [Unknown]
  - Cardiac disorder [Unknown]
  - Fall [Unknown]
  - Blood pressure abnormal [Unknown]
  - Pruritus [Not Recovered/Not Resolved]
  - Thyroid disorder [Unknown]
  - Joint injury [Unknown]
  - Bed bug infestation [Unknown]
  - Treatment noncompliance [Not Recovered/Not Resolved]
